FAERS Safety Report 4456632-8 (Version None)
Quarter: 2004Q3

REPORT INFORMATION
  Report Type: 
  Country: None (occurrence: None)
  Receive Date: 20040921
  Receipt Date: 20040903
  Transmission Date: 20050211
  Serious: Yes (Other)
  Sender: FDA-Public Use
  Company Number: ZA-2004-031889

PATIENT
  Sex: Female

DRUGS (1)
  1. MIRENA [Suspect]
     Indication: CONTRACEPTION
     Dosage: 20 MCG/DAY, CONT, INTRA-UTERINE
     Route: 015
     Dates: start: 20020215

REACTIONS (2)
  - BLIGHTED OVUM [None]
  - PREGNANCY WITH CONTRACEPTIVE DEVICE [None]
